FAERS Safety Report 22642073 (Version 1)
Quarter: 2023Q2

REPORT INFORMATION
  Report Type: Other
  Country: None (occurrence: CH)
  Receive Date: 20230626
  Receipt Date: 20230626
  Transmission Date: 20230721
  Serious: Yes (Life-Threatening)
  Sender: FDA-Public Use
  Company Number: CH-B.Braun Medical Inc.-2143129

PATIENT
  Age: 23 Year
  Sex: Female

DRUGS (12)
  1. MEROPENEM\SODIUM CHLORIDE [Suspect]
     Active Substance: MEROPENEM\SODIUM CHLORIDE
     Indication: Infection
  2. TENOFOVIR [Concomitant]
     Active Substance: TENOFOVIR
  3. LAMIVUDINE [Concomitant]
     Active Substance: LAMIVUDINE
  4. DOLUTEGRAVIR [Concomitant]
     Active Substance: DOLUTEGRAVIR
  5. RIFAMPIN [Concomitant]
     Active Substance: RIFAMPIN
  6. ISONIAZID [Concomitant]
     Active Substance: ISONIAZID
  7. PYRAZINAMIDE [Concomitant]
     Active Substance: PYRAZINAMIDE
  8. ETHAMBUTOL [Concomitant]
     Active Substance: ETHAMBUTOL HYDROCHLORIDE
  9. PIPERACILLIN AND TAZOBACTAM [Suspect]
     Active Substance: PIPERACILLIN SODIUM\TAZOBACTAM SODIUM
  10. AMIKACIN [Suspect]
     Active Substance: AMIKACIN
  11. AZITHROMYCIN [Suspect]
     Active Substance: AZITHROMYCIN
  12. VANCOMYCIN [Suspect]
     Active Substance: VANCOMYCIN

REACTIONS (1)
  - Drug ineffective [Unknown]
